FAERS Safety Report 17298430 (Version 2)
Quarter: 2020Q1

REPORT INFORMATION
  Report Type: Report from Study
  Country: US (occurrence: US)
  Receive Date: 20200121
  Receipt Date: 20200128
  Transmission Date: 20200409
  Serious: Yes (Hospitalization)
  Sender: FDA-Public Use
  Company Number: US-ACTELION-A-NJ2019-186472

PATIENT
  Sex: Female
  Weight: 77.1 kg

DRUGS (4)
  1. OPSUMIT [Suspect]
     Active Substance: MACITENTAN
     Indication: PULMONARY HYPERTENSION
     Dosage: 10 MG, QD
     Route: 048
     Dates: start: 20150602
  2. UPTRAVI [Suspect]
     Active Substance: SELEXIPAG
     Dosage: 400 MCG, BID
     Route: 048
  3. UPTRAVI [Suspect]
     Active Substance: SELEXIPAG
     Dosage: UNK
     Route: 048
     Dates: start: 20190117
  4. UPTRAVI [Suspect]
     Active Substance: SELEXIPAG
     Indication: PULMONARY HYPERTENSION
     Dosage: 600 MCG, BID
     Route: 048

REACTIONS (15)
  - Nervous system disorder [Recovering/Resolving]
  - Migraine [Unknown]
  - Pain [Unknown]
  - Back pain [Not Recovered/Not Resolved]
  - Headache [Not Recovered/Not Resolved]
  - Bacterial infection [Recovering/Resolving]
  - Myalgia [Unknown]
  - Limb operation [Unknown]
  - Post procedural infection [Recovering/Resolving]
  - Swelling [Unknown]
  - Adverse drug reaction [Recovering/Resolving]
  - Renal disorder [Recovering/Resolving]
  - Pain in jaw [Unknown]
  - Pain in extremity [Unknown]
  - Seizure [Recovering/Resolving]
